FAERS Safety Report 7127732-9 (Version None)
Quarter: 2010Q4

REPORT INFORMATION
  Report Type: 
  Country: None (occurrence: None)
  Receive Date: 20101130
  Receipt Date: 20101118
  Transmission Date: 20110411
  Serious: No
  Sender: FDA-Public Use
  Company Number: US-BIOGENIDEC-2010BI040526

PATIENT
  Age: 44 Year
  Sex: Female

DRUGS (1)
  1. TYSABRI [Suspect]
     Indication: MULTIPLE SCLEROSIS
     Route: 042
     Dates: start: 20100907, end: 20101101

REACTIONS (5)
  - DRUG SPECIFIC ANTIBODY PRESENT [None]
  - HYPERSENSITIVITY [None]
  - MULTIPLE SCLEROSIS RELAPSE [None]
  - NASOPHARYNGITIS [None]
  - URINARY TRACT INFECTION [None]
